FAERS Safety Report 10652145 (Version 1)
Quarter: 2014Q4

REPORT INFORMATION
  Report Type: Spontaneous
  Country: US (occurrence: None)
  Receive Date: 20141212
  Receipt Date: 20141212
  Transmission Date: 20150529
  Serious: Yes (Hospitalization, Disabling)
  Sender: FDA-Public Use
  Company Number: None

PATIENT
  Age: 34 Year
  Sex: Female
  Weight: 53.52 kg

DRUGS (1)
  1. LEVOFLOXACIN. [Suspect]
     Active Substance: LEVOFLOXACIN
     Indication: URINARY TRACT INFECTION
     Dosage: TAKEN BY MOUTH
     Dates: start: 20140514, end: 20140516

REACTIONS (30)
  - Faeces discoloured [None]
  - Abdominal pain lower [None]
  - Emotional disorder [None]
  - Malabsorption [None]
  - Burning sensation [None]
  - Headache [None]
  - Skin burning sensation [None]
  - Head discomfort [None]
  - Vitamin D decreased [None]
  - Blood alkaline phosphatase decreased [None]
  - Asthenia [None]
  - Dyspnoea [None]
  - Dysphagia [None]
  - Fatigue [None]
  - Nightmare [None]
  - Tongue discolouration [None]
  - Dysgeusia [None]
  - Hepatic pain [None]
  - Palpitations [None]
  - Anxiety [None]
  - Crying [None]
  - Musculoskeletal stiffness [None]
  - Abdominal pain [None]
  - Speech disorder [None]
  - Arthralgia [None]
  - Weight decreased [None]
  - Diarrhoea [None]
  - Hypoaesthesia [None]
  - Arthropathy [None]
  - Ocular discomfort [None]

NARRATIVE: CASE EVENT DATE: 20140514
